FAERS Safety Report 9316704 (Version 1)
Quarter: 2013Q2

REPORT INFORMATION
  Report Type: Spontaneous
  Country: AU (occurrence: AU)
  Receive Date: 20130530
  Receipt Date: 20130530
  Transmission Date: 20140414
  Serious: Yes (Other)
  Sender: FDA-Public Use
  Company Number: AU-TEVA-408762ISR

PATIENT
  Sex: 0

DRUGS (1)
  1. AZILECT [Suspect]

REACTIONS (1)
  - Serotonin syndrome [Unknown]
